FAERS Safety Report 5367625-0 (Version None)
Quarter: 2007Q2

REPORT INFORMATION
  Report Type: 
  Country: None (occurrence: None)
  Receive Date: 20070622
  Receipt Date: 20070123
  Transmission Date: 20071010
  Serious: No
  Sender: FDA-Public Use
  Company Number: US-ASTRAZENECA-2007UW01369

PATIENT
  Age: 76 Year
  Sex: Female
  Weight: 62.6 kg

DRUGS (2)
  1. PULMICORT [Suspect]
     Indication: ASTHMA
     Route: 055
     Dates: start: 20070122
  2. TOPAMAX [Concomitant]

REACTIONS (2)
  - DIZZINESS [None]
  - HEART RATE INCREASED [None]
